FAERS Safety Report 9046203 (Version 1)
Quarter: 2013Q1

REPORT INFORMATION
  Report Type: Report from Study
  Country: DE (occurrence: DE)
  Receive Date: 20130201
  Receipt Date: 20130201
  Transmission Date: 20140127
  Serious: Yes (Hospitalization)
  Sender: FDA-Public Use
  Company Number: PHHY2013DE009241

PATIENT
  Sex: Female

DRUGS (3)
  1. FTY 720 [Suspect]
     Indication: MULTIPLE SCLEROSIS
     Dosage: 0.5 MG, QD
     Route: 048
     Dates: start: 20120725
  2. IBUPROFEN [Concomitant]
     Indication: MIGRAINE
     Dosage: 600 MG, PRN
     Dates: start: 20101001
  3. CONTRACEPTIVES NOS [Concomitant]
     Dosage: UNK UKN, UNK
     Dates: start: 20120701

REACTIONS (1)
  - Migraine with aura [Recovered/Resolved]
